FAERS Safety Report 5350827-7 (Version None)
Quarter: 2007Q2

REPORT INFORMATION
  Report Type: 
  Country: None (occurrence: None)
  Receive Date: 20070608
  Receipt Date: 20070531
  Transmission Date: 20071010
  Serious: Yes (Hospitalization, Other)
  Sender: FDA-Public Use
  Company Number: AU-AVENTIS-200714917GDDC

PATIENT
  Age: 76 Year
  Sex: Female

DRUGS (2)
  1. LANTUS [Suspect]
     Indication: DIABETES MELLITUS
     Dosage: DOSE: UNK
     Dates: start: 20070503
  2. AUTOPEN INSULIN INJECTION PEN [Suspect]

REACTIONS (4)
  - ILL-DEFINED DISORDER [None]
  - POST PROCEDURAL SEPSIS [None]
  - SEPSIS [None]
  - SKIN GRAFT [None]
